FAERS Safety Report 10206109 (Version 1)
Quarter: 2014Q2

REPORT INFORMATION
  Report Type: Spontaneous
  Country: US (occurrence: US)
  Receive Date: 20140530
  Receipt Date: 20140530
  Transmission Date: 20141212
  Serious: No
  Sender: FDA-Public Use
  Company Number: US-PFIZER INC-2014148471

PATIENT
  Age: 67 Year
  Sex: Male
  Weight: 84.81 kg

DRUGS (1)
  1. XELJANZ [Suspect]
     Indication: ARTHRITIS
     Dosage: 5 MG, 2X/DAY
     Route: 048
     Dates: start: 20140522

REACTIONS (1)
  - Mental disorder [Unknown]
